FAERS Safety Report 16508775 (Version 1)
Quarter: 2019Q3

REPORT INFORMATION
  Report Type: Spontaneous
  Country: FR (occurrence: FR)
  Receive Date: 20190701
  Receipt Date: 20190701
  Transmission Date: 20191004
  Serious: Yes (Other)
  Sender: FDA-Public Use
  Company Number: FR-MYLANLABS-2019M1059755

PATIENT
  Age: 17 Year
  Sex: Male
  Weight: 60 kg

DRUGS (1)
  1. RISPERIDONE. [Suspect]
     Active Substance: RISPERIDONE
     Indication: MENTAL DISORDER
     Dosage: 2 MILLIGRAM, TOTAL
     Route: 048
     Dates: start: 20181207

REACTIONS (3)
  - Wrong dose [Recovered/Resolved]
  - Medication error [Recovered/Resolved]
  - Vomiting [Recovered/Resolved]

NARRATIVE: CASE EVENT DATE: 20181207
